FAERS Safety Report 10868603 (Version 2)
Quarter: 2015Q1

REPORT INFORMATION
  Report Type: Report from Study
  Country: CA (occurrence: CA)
  Receive Date: 20150225
  Receipt Date: 20150303
  Transmission Date: 20150721
  Serious: Yes (Hospitalization, Other)
  Sender: FDA-Public Use
  Company Number: PHHY2015CA021005

PATIENT
  Age: 71 Year
  Sex: Female

DRUGS (3)
  1. OLMETEC [Concomitant]
     Active Substance: OLMESARTAN MEDOXOMIL
     Indication: PRODUCT USED FOR UNKNOWN INDICATION
     Dosage: 20 MG, QD
     Route: 065
  2. SALOFAN [Concomitant]
     Indication: PRODUCT USED FOR UNKNOWN INDICATION
     Dosage: 1000 OT, BID
     Route: 065
  3. ACLASTA [Suspect]
     Active Substance: ZOLEDRONIC ACID
     Indication: OSTEOPOROSIS
     Dosage: 5 MG, UNK
     Route: 042
     Dates: start: 20150213

REACTIONS (19)
  - Eye pruritus [Unknown]
  - Myalgia [Unknown]
  - Foreign body sensation in eyes [Unknown]
  - Headache [Unknown]
  - Photophobia [Unknown]
  - Visual acuity reduced [Unknown]
  - Diplopia [Recovered/Resolved]
  - Ocular hyperaemia [Recovered/Resolved]
  - Glassy eyes [Recovered/Resolved]
  - Lacrimation increased [Unknown]
  - Rhinitis [Unknown]
  - Vision blurred [Unknown]
  - Nausea [Unknown]
  - Eyelid oedema [Recovered/Resolved]
  - Eye swelling [Recovered/Resolved]
  - Bone pain [Unknown]
  - Eye pain [Recovered/Resolved]
  - Eye disorder [Recovered/Resolved]
  - Eye irritation [Unknown]

NARRATIVE: CASE EVENT DATE: 20150213
